FAERS Safety Report 4892943-X (Version None)
Quarter: 2006Q1

REPORT INFORMATION
  Report Type: 
  Country: None (occurrence: None)
  Receive Date: 20060126
  Receipt Date: 20050909
  Transmission Date: 20060701
  Serious: Yes (Hospitalization)
  Sender: FDA-Public Use
  Company Number: US-MERCK-0509USA01081

PATIENT
  Age: 76 Year
  Sex: Male
  Weight: 100 kg

DRUGS (4)
  1. VYTORIN [Suspect]
     Indication: HYPERCHOLESTEROLAEMIA
     Route: 048
     Dates: start: 20050831, end: 20050909
  2. LISINOPRIL [Concomitant]
     Route: 065
  3. ASPIRIN [Concomitant]
     Route: 065
  4. NEXIUM [Concomitant]
     Route: 065

REACTIONS (1)
  - GLOBAL AMNESIA [None]
